FAERS Safety Report 7774280-9 (Version None)
Quarter: 2011Q3

REPORT INFORMATION
  Report Type: 
  Country: None (occurrence: None)
  Receive Date: 20110923
  Receipt Date: 20110916
  Transmission Date: 20111222
  Serious: Yes (Disabling)
  Sender: FDA-Public Use
  Company Number: GB-UCBSA-041529

PATIENT
  Age: 72 Year
  Sex: Female

DRUGS (5)
  1. MADOPAR [Concomitant]
     Indication: PARKINSON'S DISEASE
     Dosage: 125 MG
     Route: 048
     Dates: start: 20090101
  2. MELOXICAM [Concomitant]
     Indication: ARTHRITIS
     Dosage: 7.5 MG
     Route: 048
     Dates: start: 20020101
  3. SULFASALAZINE [Concomitant]
     Indication: ARTHRITIS
     Dosage: 500 MG
     Route: 048
     Dates: start: 20020101
  4. NEUPRO [Suspect]
     Indication: PARKINSON'S DISEASE
     Dosage: 1 MG
     Route: 062
     Dates: start: 20110627, end: 20110809
  5. BISOPROLOL FUMARATE [Concomitant]
     Indication: HYPERTENSION
     Dosage: 1.25 MG
     Route: 048

REACTIONS (2)
  - ARTHRITIS [None]
  - ARTHRALGIA [None]
